FAERS Safety Report 23351866 (Version 1)
Quarter: 2023Q4

REPORT INFORMATION
  Report Type: Report from Study
  Country: DE (occurrence: DE)
  Receive Date: 20231229
  Receipt Date: 20231229
  Transmission Date: 20240109
  Serious: Yes (Hospitalization)
  Sender: FDA-Public Use
  Company Number: DE-JNJFOC-20231269417

PATIENT
  Age: 75 Year
  Sex: Male
  Weight: 64 kg

DRUGS (28)
  1. DARATUMUMAB [Suspect]
     Active Substance: DARATUMUMAB
     Indication: Plasma cell myeloma
     Route: 058
     Dates: start: 20230510
  2. DARATUMUMAB [Suspect]
     Active Substance: DARATUMUMAB
     Dosage: 24-MAY-2023, 31-MAY-2023, 07-JUN-2023, 14-JUN-2023, 21-JUN-2023, 28-JUN-2023, 05-JUL-2023, 19-JUL-20
     Route: 058
     Dates: start: 20230517
  3. LENALIDOMIDE [Suspect]
     Active Substance: LENALIDOMIDE
     Indication: Plasma cell myeloma
     Route: 048
     Dates: start: 20230510, end: 20230530
  4. LENALIDOMIDE [Suspect]
     Active Substance: LENALIDOMIDE
     Route: 048
     Dates: start: 20230607, end: 20230627
  5. LENALIDOMIDE [Suspect]
     Active Substance: LENALIDOMIDE
     Route: 048
     Dates: start: 20230705, end: 20230725
  6. LENALIDOMIDE [Suspect]
     Active Substance: LENALIDOMIDE
     Route: 048
     Dates: start: 20230802, end: 20230822
  7. LENALIDOMIDE [Suspect]
     Active Substance: LENALIDOMIDE
     Route: 048
     Dates: start: 20230830, end: 20230919
  8. LENALIDOMIDE [Suspect]
     Active Substance: LENALIDOMIDE
     Route: 048
     Dates: start: 20230927, end: 20231017
  9. LENALIDOMIDE [Suspect]
     Active Substance: LENALIDOMIDE
     Route: 048
     Dates: start: 20231025, end: 20231114
  10. LENALIDOMIDE [Suspect]
     Active Substance: LENALIDOMIDE
     Route: 048
     Dates: start: 20231122, end: 20231212
  11. DEXAMETHASONE [Suspect]
     Active Substance: DEXAMETHASONE
     Indication: Plasma cell myeloma
     Route: 048
     Dates: start: 20230509
  12. DEXAMETHASONE [Suspect]
     Active Substance: DEXAMETHASONE
     Dosage: 24-MAY-2023, 31-MAY-2023, 07-JUN-2023, 14-JUN-2023, 21-JUN-2023, 28-JUN-2023, 05-JUL-2023, 19-JUL-20
     Route: 042
     Dates: start: 20230517
  13. DEXAMETHASONE [Suspect]
     Active Substance: DEXAMETHASONE
     Dosage: 26-JUL-2023, 09-AUG-2023, 23-AUG-2023, 06-SEP-2023, 20-SEP-2023, 05-OCT-2023, 19-OCT-2023,
     Route: 048
     Dates: start: 20230712
  14. DEXAMETHASONE [Suspect]
     Active Substance: DEXAMETHASONE
     Dosage: 08-NOV-2023, 15-NOV-2023, 29-NOV-2023, 06-DEC-2023, 13-DEC-2023
     Route: 048
     Dates: start: 20231101
  15. SACUBITRIL [Concomitant]
     Active Substance: SACUBITRIL
     Indication: Coronary artery disease
     Route: 048
  16. VALSARTAN [Concomitant]
     Active Substance: VALSARTAN
     Indication: Coronary artery disease
     Route: 048
  17. ALLOPURINOL [Concomitant]
     Active Substance: ALLOPURINOL
     Indication: Prophylaxis
     Route: 048
  18. CARVEDILOL [Concomitant]
     Active Substance: CARVEDILOL
     Indication: Coronary artery disease
     Route: 048
  19. DIGITOXIN [Concomitant]
     Active Substance: DIGITOXIN
     Indication: Coronary artery disease
     Route: 048
  20. EPLERENONE [Concomitant]
     Active Substance: EPLERENONE
     Indication: Coronary artery disease
     Route: 048
  21. FOLIC ACID [Concomitant]
     Active Substance: FOLIC ACID
     Indication: Prophylaxis
     Route: 048
  22. DAPAGLIFLOZIN [Concomitant]
     Active Substance: DAPAGLIFLOZIN
     Indication: Diabetes mellitus
     Route: 048
  23. DABIGATRAN ETEXILATE [Concomitant]
     Active Substance: DABIGATRAN ETEXILATE
     Indication: Prophylaxis
     Route: 048
  24. TORSEMIDE [Concomitant]
     Active Substance: TORSEMIDE
     Indication: Coronary artery disease
     Route: 048
  25. HYDROMORPHONE [Concomitant]
     Active Substance: HYDROMORPHONE
     Indication: Spinal cord neoplasm
     Dosage: PM (AS NEEDED)
     Route: 048
     Dates: start: 20230428
  26. HYDROMORPHONE [Concomitant]
     Active Substance: HYDROMORPHONE
     Route: 048
     Dates: start: 20230428
  27. ACYCLOVIR [Concomitant]
     Active Substance: ACYCLOVIR
     Indication: Prophylaxis
     Route: 048
     Dates: start: 20230515
  28. MORPHINE [Concomitant]
     Active Substance: MORPHINE
     Indication: Spinal cord neoplasm
     Dosage: PM (AS NEEDED)
     Route: 048
     Dates: start: 20230531

REACTIONS (1)
  - Sinus node dysfunction [Recovered/Resolved]

NARRATIVE: CASE EVENT DATE: 20231212
